FAERS Safety Report 23379314 (Version 2)
Quarter: 2024Q1

REPORT INFORMATION
  Report Type: Report from Study
  Country: CA (occurrence: CA)
  Receive Date: 20240108
  Receipt Date: 20240202
  Transmission Date: 20240409
  Serious: Yes (Death, Hospitalization, Other)
  Sender: FDA-Public Use
  Company Number: CA-ABBVIE-5574095

PATIENT
  Age: 87 Year
  Sex: Male

DRUGS (8)
  1. LUPRON DEPOT [Suspect]
     Active Substance: LEUPROLIDE ACETATE
     Indication: Prostate cancer
     Route: 065
     Dates: start: 20210315, end: 20240116
  2. FERROUS SULFATE [Concomitant]
     Active Substance: FERROUS SULFATE
     Indication: Product used for unknown indication
     Dosage: FREQUENCY TEXT: BEDTIME
     Dates: start: 2021
  3. JUBLIA [Concomitant]
     Active Substance: EFINACONAZOLE
     Indication: Nail disorder
     Dosage: 10 PERCENT LIQUID TOP?FREQUENCY TEXT: BEDTIME
  4. CALCIUM [Concomitant]
     Active Substance: CALCIUM
     Indication: Product used for unknown indication
     Dates: start: 2021
  5. ALENDRONATE [Concomitant]
     Active Substance: ALENDRONATE SODIUM
     Indication: Product used for unknown indication
     Dates: start: 2021
  6. TAMSULOSIN [Concomitant]
     Active Substance: TAMSULOSIN
     Indication: Product used for unknown indication
     Dosage: CONTROLLED RELEASE TABLET
  7. SYNTHROID [Suspect]
     Active Substance: LEVOTHYROXINE SODIUM
     Indication: Product used for unknown indication
     Route: 048
  8. D Tab [Concomitant]
     Indication: Product used for unknown indication
     Dates: start: 2021

REACTIONS (4)
  - Neoplasm malignant [Fatal]
  - Discomfort [Unknown]
  - Syncope [Unknown]
  - Facial paralysis [Unknown]

NARRATIVE: CASE EVENT DATE: 20240103
